FAERS Safety Report 18576093 (Version 1)
Quarter: 2020Q4

REPORT INFORMATION
  Report Type: Spontaneous
  Country: TR (occurrence: TR)
  Receive Date: 20201203
  Receipt Date: 20201203
  Transmission Date: 20210114
  Serious: Yes (Hospitalization)
  Sender: FDA-Public Use
  Company Number: TR-LUPIN PHARMACEUTICALS INC.-2020-09415

PATIENT
  Age: 35 Year
  Sex: Male

DRUGS (6)
  1. TYOFLEX [Suspect]
     Active Substance: THIOCOLCHICOSIDE
     Indication: HICCUPS
     Dosage: 2 MILLIGRAM, UNK (MESOTHERAPY WITH INTRADERMAL INJECTION WAS PERFORMED BY USING 4MM LONG 30 GAUGE NE
     Route: 023
  2. SODIUM ALGINATE [Suspect]
     Active Substance: SODIUM ALGINATE
     Indication: HICCUPS
     Dosage: UNK (10 CC REFLUX-SUPPRESSANT)
     Route: 048
  3. ARITMAL [Suspect]
     Active Substance: LIDOCAINE HYDROCHLORIDE
     Indication: HICCUPS
     Dosage: 16.2 MILLIGRAM, UNK (MESOTHERAPY WITH INTRADERMAL INJECTION WAS PERFORMED BY USING 4MM LONG 30 GAUGE
     Route: 023
  4. LARGACTIL [CHLORPROMAZINE HYDROCHLORIDE] [Suspect]
     Active Substance: CHLORPROMAZINE HYDROCHLORIDE
     Indication: HICCUPS
     Dosage: UNK (IN 500 CC ISOTONIC SOLUTION WITHIN 30 MIN)
     Route: 042
  5. METOCLOPRAMIDE. [Suspect]
     Active Substance: METOCLOPRAMIDE
     Indication: HICCUPS
     Dosage: UNK (FORMULATION: SOLUTION, IN 500 CC ISOTONIC SOLUTION WITHIN 30 MIN)
     Route: 042
  6. ESOMEPRAZOLE. [Suspect]
     Active Substance: ESOMEPRAZOLE MAGNESIUM
     Indication: EVIDENCE BASED TREATMENT
     Dosage: 40 MILLIGRAM, UNK
     Route: 042

REACTIONS (2)
  - Off label use [Unknown]
  - Drug ineffective [Unknown]
